FAERS Safety Report 6322957-4 (Version None)
Quarter: 2009Q3

REPORT INFORMATION
  Report Type: 
  Country: None (occurrence: None)
  Receive Date: 20090820
  Receipt Date: 20090817
  Transmission Date: 20100115
  Serious: Yes (Other)
  Sender: FDA-Public Use
  Company Number: 2009S1006723

PATIENT
  Age: 75 Year
  Sex: Female

DRUGS (3)
  1. PHOSPHOSODA FLAVOR NOT SPECIFIED [Suspect]
     Indication: COLONOSCOPY
     Dosage: PO
     Route: 048
     Dates: start: 20081001, end: 20081001
  2. PHOSPHOSODA FLAVOR NOT SPECIFIED [Suspect]
     Indication: HAEMORRHOID OPERATION
     Dosage: PO
     Route: 048
     Dates: start: 20081001, end: 20081001
  3. VERAPAMIL [Concomitant]

REACTIONS (1)
  - RENAL FAILURE [None]
